FAERS Safety Report 10186357 (Version 2)
Quarter: 2014Q2

REPORT INFORMATION
  Report Type: Spontaneous
  Country: US (occurrence: US)
  Receive Date: 20140521
  Receipt Date: 20140605
  Transmission Date: 20141212
  Serious: No
  Sender: FDA-Public Use
  Company Number: US-009507513-1405USA008604

PATIENT
  Age: 71 Year
  Sex: Female
  Weight: 65.31 kg

DRUGS (1)
  1. OXYTROL FOR WOMEN [Suspect]
     Indication: HYPERTONIC BLADDER
     Dosage: 1 PATCH EVERY 4 DAYS
     Route: 062
     Dates: start: 20140323, end: 20140415

REACTIONS (1)
  - Drug ineffective [Not Recovered/Not Resolved]
